FAERS Safety Report 7961756-4 (Version None)
Quarter: 2011Q4

REPORT INFORMATION
  Report Type: 
  Country: None (occurrence: None)
  Receive Date: 20111202
  Receipt Date: 20111202
  Transmission Date: 20120403
  Serious: Yes (Disabling)
  Sender: FDA-Public Use
  Company Number: None

PATIENT
  Age: 82 Year
  Sex: Female
  Weight: 63.9572 kg

DRUGS (1)
  1. BONIVA [Suspect]
     Indication: OSTEOPOROSIS
     Dosage: EVERY 3 MONTHS INFUSION
     Dates: start: 20090101, end: 20110101

REACTIONS (2)
  - WEIGHT DECREASED [None]
  - RENAL FAILURE CHRONIC [None]
